FAERS Safety Report 5271713-7 (Version None)
Quarter: 2007Q1

REPORT INFORMATION
  Report Type: 
  Country: None (occurrence: None)
  Receive Date: 20070321
  Receipt Date: 20070309
  Transmission Date: 20070707
  Serious: Yes (Other)
  Sender: FDA-Public Use
  Company Number: US-PFIZER INC-2006141897

PATIENT
  Sex: Female

DRUGS (11)
  1. LYRICA [Suspect]
     Indication: DIABETIC NEUROPATHY
  2. LYRICA [Suspect]
     Indication: PARAESTHESIA
  3. SYNTHROID [Concomitant]
  4. NEXIUM [Concomitant]
  5. ACETYLSALICYLIC ACID SRT [Concomitant]
  6. MICARDIS HCT [Concomitant]
  7. CALCIUM WITH VITAMIN D [Concomitant]
  8. AMARYL [Concomitant]
  9. ESTRACE VAGINAL CREAM [Concomitant]
  10. LEXAPRO [Concomitant]
  11. INDOMETHACIN [Concomitant]

REACTIONS (5)
  - CONFUSIONAL STATE [None]
  - DISTURBANCE IN ATTENTION [None]
  - FEELING ABNORMAL [None]
  - GAIT DISTURBANCE [None]
  - SPEECH DISORDER [None]
